FAERS Safety Report 8992313 (Version 1)
Quarter: 2012Q4

REPORT INFORMATION
  Report Type: Report from Study
  Country: AR (occurrence: AR)
  Receive Date: 20121231
  Receipt Date: 20121231
  Transmission Date: 20130627
  Serious: Yes (Other)
  Sender: FDA-Public Use
  Company Number: AR-ABBOTT-12P-007-1026688-00

PATIENT
  Age: 65 Year
  Sex: Female

DRUGS (5)
  1. HUMIRA [Suspect]
     Indication: RHEUMATOID ARTHRITIS
     Route: 058
     Dates: start: 201112, end: 20121215
  2. METHOTREXATE [Concomitant]
     Indication: PRODUCT USED FOR UNKNOWN INDICATION
  3. UNKNOWN MEDICATION [Concomitant]
     Indication: PAIN
  4. UNKNOWN MEDICATION [Concomitant]
     Indication: BLOOD CHOLESTEROL
  5. UNKNOWN MEDICATION [Concomitant]
     Indication: OSTEOPOROSIS

REACTIONS (5)
  - Lung infiltration [Not Recovered/Not Resolved]
  - Pulmonary mass [Unknown]
  - Muscular weakness [Not Recovered/Not Resolved]
  - Rheumatoid arthritis [Not Recovered/Not Resolved]
  - Pain [Recovered/Resolved]
